FAERS Safety Report 5193836-3 (Version None)
Quarter: 2006Q4

REPORT INFORMATION
  Report Type: 
  Country: None (occurrence: None)
  Receive Date: 20061222
  Receipt Date: 20061211
  Transmission Date: 20070319
  Serious: Yes (Death, Hospitalization)
  Sender: FDA-Public Use
  Company Number: 2006152372

PATIENT
  Age: 61 Year
  Sex: Male
  Weight: 108.8633 kg

DRUGS (6)
  1. CELEBREX [Suspect]
     Indication: ARTHRITIS
     Dosage: 200 MG
     Dates: start: 19990413, end: 20020101
  2. BEXTRA [Suspect]
     Indication: ARTHRITIS
     Dosage: 20 MG (20 MG, 1 IN 1 D)
     Dates: start: 20020910, end: 20030602
  3. ADVIL [Concomitant]
  4. CODEINE SUL TAB [Concomitant]
  5. MORPHINE [Concomitant]
  6. TYLENOL [Concomitant]

REACTIONS (1)
  - MYOCARDIAL INFARCTION [None]
